FAERS Safety Report 8017508-2 (Version None)
Quarter: 2011Q4

REPORT INFORMATION
  Report Type: 
  Country: None (occurrence: None)
  Receive Date: 20111228
  Receipt Date: 20111228
  Transmission Date: 20120403
  Serious: Yes (Other)
  Sender: FDA-Public Use
  Company Number: None

PATIENT
  Sex: Male

DRUGS (6)
  1. OMEPRAZOLE [Concomitant]
  2. JANUVIA [Suspect]
     Indication: DIABETES MELLITUS
     Dosage: 100 1/DAY
     Dates: start: 20110925, end: 20111015
  3. SIMVASTATIN [Concomitant]
  4. AMADYL [Concomitant]
  5. LISINOPRIL [Concomitant]
  6. SYNTHROID [Concomitant]

REACTIONS (3)
  - ASTHENIA [None]
  - ARRHYTHMIA [None]
  - CARDIAC FLUTTER [None]
